FAERS Safety Report 25815963 (Version 1)
Quarter: 2025Q3

REPORT INFORMATION
  Report Type: Spontaneous
  Country: EU (occurrence: EU)
  Receive Date: 20250918
  Receipt Date: 20250918
  Transmission Date: 20251020
  Serious: Yes (Life-Threatening, Other)
  Sender: AUROBINDO
  Company Number: EU-EMA-20141226-balwinderevhp-114415830

PATIENT
  Age: 3 Year
  Sex: Female

DRUGS (1)
  1. RIVASTIGMINE [Suspect]
     Active Substance: RIVASTIGMINE
     Indication: Product used for unknown indication
     Dosage: 4 MILLIGRAM, ONCE A DAY
     Route: 048

REACTIONS (13)
  - Cholinergic syndrome [Recovered/Resolved]
  - Accidental exposure to product by child [Recovered/Resolved]
  - Arrhythmia [Unknown]
  - Confusional state [Unknown]
  - Somnolence [Unknown]
  - Mental status changes [Recovered/Resolved]
  - Toxicity to various agents [Recovered/Resolved]
  - Respiratory failure [Recovered/Resolved]
  - Hyperhidrosis [Recovered/Resolved]
  - Hyporesponsive to stimuli [Recovered/Resolved]
  - Salivary hypersecretion [Recovered/Resolved]
  - Sinus tachycardia [Recovered/Resolved]
  - Diarrhoea [Unknown]
